FAERS Safety Report 6138407-7 (Version None)
Quarter: 2009Q1

REPORT INFORMATION
  Report Type: 
  Country: None (occurrence: None)
  Receive Date: 20090331
  Receipt Date: 20090323
  Transmission Date: 20090719
  Serious: Yes (Other)
  Sender: FDA-Public Use
  Company Number: PHEH2009US02893

PATIENT
  Age: 62 Year
  Sex: Female

DRUGS (7)
  1. RECLAST [Suspect]
     Indication: OSTEOPOROSIS
     Dosage: 5 MG, ONCE/SINGLE
     Route: 042
     Dates: start: 20090303, end: 20090303
  2. LIPITOR [Concomitant]
  3. BACLOFEN [Concomitant]
  4. COLACE [Concomitant]
  5. M.V.I. [Concomitant]
  6. MIRALAX [Concomitant]
  7. PRILOSEC [Concomitant]

REACTIONS (1)
  - HYPOTHERMIA [None]
